FAERS Safety Report 6087457-8 (Version None)
Quarter: 2009Q1

REPORT INFORMATION
  Report Type: 
  Country: None (occurrence: None)
  Receive Date: 20090223
  Receipt Date: 20090216
  Transmission Date: 20090719
  Serious: Yes (Other)
  Sender: FDA-Public Use
  Company Number: US-BIOGENIDEC-2008BI017192

PATIENT
  Age: 58 Year
  Sex: Female
  Weight: 43 kg

DRUGS (4)
  1. AVONEX [Suspect]
     Indication: MULTIPLE SCLEROSIS
     Route: 030
     Dates: start: 19960101, end: 20030101
  2. AVONEX [Suspect]
     Route: 030
     Dates: start: 20030101
  3. AVONEX [Suspect]
     Route: 030
     Dates: start: 20030101, end: 20070808
  4. AVONEX [Suspect]
     Route: 030
     Dates: start: 20071128

REACTIONS (6)
  - BASAL CELL CARCINOMA [None]
  - INFLUENZA LIKE ILLNESS [None]
  - RETCHING [None]
  - SHOULDER OPERATION [None]
  - TREMOR [None]
  - VOMITING [None]
